FAERS Safety Report 7410241-7 (Version None)
Quarter: 2011Q2

REPORT INFORMATION
  Report Type: 
  Country: None (occurrence: None)
  Receive Date: 20110412
  Receipt Date: 20110330
  Transmission Date: 20111010
  Serious: Yes (Other)
  Sender: FDA-Public Use
  Company Number: US-BAYER-2011-028748

PATIENT
  Age: 55 Year
  Sex: Female

DRUGS (4)
  1. SYNTHROID [Concomitant]
  2. ALKA-SELTZER PLUS NIGHT COLD MEDICINE LIQUID GELS [Suspect]
     Indication: NASOPHARYNGITIS
     Dosage: 1 DF, ONCE, BOTTLE COUNT 20S
     Route: 048
     Dates: start: 20110329, end: 20110329
  3. WELLBUTRIN [Concomitant]
  4. ESTRADIOL [Concomitant]

REACTIONS (6)
  - SYNCOPE [None]
  - DISORIENTATION [None]
  - RETCHING [None]
  - BALANCE DISORDER [None]
  - SPEECH DISORDER [None]
  - COLD SWEAT [None]
